FAERS Safety Report 15402157 (Version 2)
Quarter: 2019Q1

REPORT INFORMATION
  Report Type: Report from Study
  Country: US (occurrence: US)
  Receive Date: 20180919
  Receipt Date: 20190115
  Transmission Date: 20190417
  Serious: No
  Sender: FDA-Public Use
  Company Number: US-ROCHE-2170912

PATIENT
  Age: 50 Year
  Sex: Female

DRUGS (1)
  1. OCREVUS [Suspect]
     Active Substance: OCRELIZUMAB
     Indication: RELAPSING MULTIPLE SCLEROSIS
     Dosage: DAY 1 AND DAY 15, THEN 600 MG ONCE IN 6 MONTHS
     Route: 065
     Dates: start: 20180813

REACTIONS (6)
  - Throat irritation [Recovered/Resolved]
  - Palpitations [Recovered/Resolved]
  - Cough [Unknown]
  - Rhinitis [Recovered/Resolved]
  - Rhinorrhoea [Unknown]
  - Injection site reaction [Unknown]

NARRATIVE: CASE EVENT DATE: 20180813
